FAERS Safety Report 21620154 (Version 2)
Quarter: 2022Q4

REPORT INFORMATION
  Report Type: Report from Study
  Country: JP (occurrence: JP)
  Receive Date: 20221121
  Receipt Date: 20221209
  Transmission Date: 20230113
  Serious: Yes (Other)
  Sender: FDA-Public Use
  Company Number: JP-TAKEDA-2022TJP077554

PATIENT
  Age: 5 Year
  Sex: Male

DRUGS (37)
  1. VELAGLUCERASE ALFA [Suspect]
     Active Substance: VELAGLUCERASE ALFA
     Indication: Gaucher^s disease type II
     Dosage: 60 INTERNATIONAL UNIT/KILOGRAM, Q2WEEKS
     Route: 041
     Dates: start: 20190730, end: 20190814
  2. VELAGLUCERASE ALFA [Suspect]
     Active Substance: VELAGLUCERASE ALFA
     Dosage: 60 INTERNATIONAL UNIT/KILOGRAM, Q4WEEKS
     Route: 041
     Dates: start: 20190911, end: 20191206
  3. VELAGLUCERASE ALFA [Suspect]
     Active Substance: VELAGLUCERASE ALFA
     Dosage: 60 INTERNATIONAL UNIT/KILOGRAM, Q4WEEKS
     Route: 041
     Dates: start: 20191224, end: 20200121
  4. VELAGLUCERASE ALFA [Suspect]
     Active Substance: VELAGLUCERASE ALFA
     Dosage: 60 INTERNATIONAL UNIT/KILOGRAM, Q8WEEKS
     Route: 041
     Dates: start: 20200206, end: 20200407
  5. VELAGLUCERASE ALFA [Suspect]
     Active Substance: VELAGLUCERASE ALFA
     Dosage: 60 INTERNATIONAL UNIT/KILOGRAM, Q4WEEKS
     Route: 041
     Dates: start: 20200717, end: 20200814
  6. VELAGLUCERASE ALFA [Suspect]
     Active Substance: VELAGLUCERASE ALFA
     Dosage: 60 INTERNATIONAL UNIT/KILOGRAM
     Route: 041
     Dates: start: 20200825, end: 20200825
  7. VELAGLUCERASE ALFA [Suspect]
     Active Substance: VELAGLUCERASE ALFA
     Dosage: 60 INTERNATIONAL UNIT/KILOGRAM, Q4WEEKS
     Route: 041
     Dates: start: 20201023, end: 20210115
  8. VELAGLUCERASE ALFA [Suspect]
     Active Substance: VELAGLUCERASE ALFA
     Dosage: 60 INTERNATIONAL UNIT/KILOGRAM, Q2WEEKS
     Route: 041
     Dates: start: 20210212
  9. CLARITHROMYCIN [Concomitant]
     Active Substance: CLARITHROMYCIN
     Indication: Prophylaxis
     Dosage: 30 MILLIGRAM
     Route: 048
     Dates: start: 20210414
  10. HERBALS [Concomitant]
     Active Substance: HERBALS
     Indication: Prophylaxis
     Dosage: 2.5 GRAM
     Route: 048
  11. SODIUM FERROUS CITRATE [Concomitant]
     Active Substance: SODIUM FERROUS CITRATE
     Indication: Mineral supplementation
     Dosage: 0.6 GRAM
     Route: 048
     Dates: start: 20210414
  12. SODIUM FERROUS CITRATE [Concomitant]
     Active Substance: SODIUM FERROUS CITRATE
     Dosage: 1 DOSAGE FORM
     Route: 048
     Dates: end: 20210414
  13. BIOTIN [Concomitant]
     Active Substance: BIOTIN
     Indication: Prophylaxis
     Dosage: 1 MILLIGRAM
     Route: 048
  14. LEVETIRACETAM [Concomitant]
     Active Substance: LEVETIRACETAM
     Indication: Gaucher^s disease type II
     Dosage: 150 MILLIGRAM
     Route: 048
  15. PANAX GINSENG ROOT/ZANTHOXYLUM PIPERITUM PERICARP/ZINGIBER OFFICINALE [Concomitant]
     Indication: Prophylaxis
     Dosage: 2 DOSAGE FORM
     Route: 048
     Dates: start: 20210215
  16. POTASSIUM GLUCONATE [Concomitant]
     Active Substance: POTASSIUM GLUCONATE
     Indication: Prophylaxis
     Dosage: 0.5 GRAM
     Route: 048
  17. LIORESAL [Concomitant]
     Active Substance: BACLOFEN
     Indication: Gaucher^s disease type II
     Dosage: 20 MILLIGRAM
     Route: 048
  18. DANTRIUM [Concomitant]
     Active Substance: DANTROLENE SODIUM
     Indication: Gaucher^s disease type II
     Dosage: 150 MILLIGRAM
     Route: 048
  19. DANTRIUM [Concomitant]
     Active Substance: DANTROLENE SODIUM
     Dosage: 2 DOSAGE FORM
     Route: 048
  20. DANTRIUM [Concomitant]
     Active Substance: DANTROLENE SODIUM
     Dosage: 5 DOSAGE FORM
     Route: 048
  21. LEVOCARNITINE [Concomitant]
     Active Substance: LEVOCARNITINE
     Indication: Prophylaxis
     Dosage: 200 UNK
     Route: 048
     Dates: start: 20210414
  22. LANSOPRAZOLE [Concomitant]
     Active Substance: LANSOPRAZOLE
     Indication: Prophylaxis
     Dosage: 0.25 DOSAGE FORM
     Route: 048
  23. PHENOBARBITAL [Concomitant]
     Active Substance: PHENOBARBITAL
     Indication: Gaucher^s disease type II
     Dosage: 70 MILLIGRAM
     Route: 048
  24. CLONAZEPAM [Concomitant]
     Active Substance: CLONAZEPAM
     Indication: Gaucher^s disease type II
     Dosage: 2 MILLIGRAM
     Route: 048
  25. CEFACLOR [Concomitant]
     Active Substance: CEFACLOR
     Indication: Prophylaxis
     Dosage: 60 MILLIGRAM
     Route: 048
     Dates: start: 20210414
  26. LEVOTHYROXINE SODIUM [Concomitant]
     Active Substance: LEVOTHYROXINE SODIUM
     Dosage: 30 MICROGRAM
     Route: 048
     Dates: start: 20210331
  27. PRANLUKAST [Concomitant]
     Active Substance: PRANLUKAST
     Indication: Prophylaxis
     Dosage: 0.3 DOSAGE FORM
     Route: 048
     Dates: end: 20210303
  28. CARBOCYSTEINE [Concomitant]
     Active Substance: CARBOCYSTEINE
     Indication: Prophylaxis
     Dosage: 150 MILLIGRAM
     Route: 048
     Dates: end: 20210303
  29. SCOPOLIA SPP. [Concomitant]
     Indication: Prophylaxis
     Dosage: 5 MILLIGRAM
     Route: 048
     Dates: end: 20210303
  30. BENZALIN [Concomitant]
     Indication: Gaucher^s disease type II
     Dosage: 2 MILLIGRAM
     Route: 048
     Dates: end: 20210317
  31. Uralyt u [Concomitant]
     Indication: Prophylaxis
     Dosage: 0.5 DOSAGE FORM
     Route: 048
     Dates: end: 20200721
  32. LEVOCARNITINE [Concomitant]
     Active Substance: LEVOCARNITINE
     Indication: Prophylaxis
     Dosage: 1 DOSAGE FORM
     Route: 048
     Dates: end: 20210414
  33. TIZANIDINE [Concomitant]
     Active Substance: TIZANIDINE
     Indication: Gaucher^s disease type II
     Dosage: 12 MILLIGRAM
     Route: 048
     Dates: end: 20200914
  34. TIZANIDINE [Concomitant]
     Active Substance: TIZANIDINE
     Dosage: 7 DOSAGE FORM
     Route: 048
  35. MIYA-BM [Concomitant]
     Active Substance: CLOSTRIDIUM BUTYRICUM SPORES STRAIN M-55
     Indication: Prophylaxis
     Dosage: 0.5 GRAM
     Route: 048
     Dates: end: 20200201
  36. BOTOX [Concomitant]
     Active Substance: ONABOTULINUMTOXINA
     Indication: Torticollis
     Dosage: UNK
     Route: 030
  37. CLARITHROMYCIN [Concomitant]
     Active Substance: CLARITHROMYCIN
     Indication: Prophylaxis
     Dosage: 0.6 DOSAGE FORM
     Route: 048
     Dates: end: 20210414

REACTIONS (2)
  - Hypothyroidism [Recovering/Resolving]
  - Anaemia [Recovering/Resolving]

NARRATIVE: CASE EVENT DATE: 20210204
